FAERS Safety Report 4687809-4 (Version None)
Quarter: 2005Q2

REPORT INFORMATION
  Report Type: 
  Country: None (occurrence: None)
  Receive Date: 20050608
  Receipt Date: 20050608
  Transmission Date: 20051028
  Serious: No
  Sender: FDA-Public Use
  Company Number: None

PATIENT
  Age: 77 Year
  Sex: Male

DRUGS (1)
  1. MALARONE [Suspect]
     Dosage: PO  QD  (X4 PAST YR)

REACTIONS (2)
  - ORAL PAIN [None]
  - STOMATITIS [None]
